FAERS Safety Report 6356776-X (Version None)
Quarter: 2009Q3

REPORT INFORMATION
  Report Type: 
  Country: None (occurrence: None)
  Receive Date: 20090911
  Receipt Date: 20090911
  Transmission Date: 20100115
  Serious: No
  Sender: FDA-Public Use
  Company Number: None

PATIENT
  Age: 11 Month
  Sex: Male
  Weight: 9.56 kg

DRUGS (1)
  1. OMNICEF [Suspect]
     Indication: OTITIS MEDIA
     Dates: start: 20090828

REACTIONS (1)
  - FAECES DISCOLOURED [None]
